FAERS Safety Report 24200937 (Version 3)
Quarter: 2025Q1

REPORT INFORMATION
  Report Type: Spontaneous
  Country: ES (occurrence: ES)
  Receive Date: 20240812
  Receipt Date: 20250122
  Transmission Date: 20250409
  Serious: Yes (Other)
  Sender: FRESENIUS KABI
  Company Number: None

PATIENT
  Age: 67 Year
  Sex: Female
  Weight: 73.5 kg

DRUGS (10)
  1. IDACIO [Suspect]
     Active Substance: ADALIMUMAB-AACF
     Indication: Psoriasis
     Route: 058
     Dates: start: 20220926, end: 20240708
  2. IDACIO [Suspect]
     Active Substance: ADALIMUMAB-AACF
     Indication: Psoriasis
  3. ADIRO  100 MG gastroresistant tablets EFG [Concomitant]
     Indication: Disease risk factor
     Dosage: FOA: GASTRO-RESISTANT TABLET
     Route: 048
     Dates: start: 2010
  4. ATORVASTATIN [Concomitant]
     Active Substance: ATORVASTATIN
     Indication: Disease risk factor
     Route: 048
     Dates: start: 20240605
  5. DELTIUS 25.000 UI/2,5 ML ORAL SOLUTION [Concomitant]
     Indication: Osteoporosis
     Dosage: FOA: ORAL SOLUTION
     Route: 048
     Dates: start: 2010
  6. ENANTYUM 25 MG HARD CAPSULE [Concomitant]
     Indication: Pain
     Route: 048
     Dates: start: 2014
  7. Valsartan/Hydrochlorothiazide 160 mg/25 mg tablet [Concomitant]
     Indication: Hypertension
     Route: 048
     Dates: start: 20240603
  8. METFORMIN HYDROCHLORIDE [Concomitant]
     Active Substance: METFORMIN HYDROCHLORIDE
     Indication: Type 2 diabetes mellitus
     Route: 048
     Dates: start: 202110, end: 202405
  9. XIGDUO 5 MG/850 MG FILM COATED TABLETS [Concomitant]
     Indication: Type 2 diabetes mellitus
     Dosage: FOA: FILM-COATED TABLET
     Route: 048
     Dates: start: 202405
  10. SANDIMMUN NEORAL 100 mg SOFT CAPSULE [Concomitant]
     Indication: Psoriasis
     Dosage: FOA: CAPSULE, SOFT
     Route: 048
     Dates: start: 202109

REACTIONS (4)
  - Haemangioma [Recovering/Resolving]
  - Condition aggravated [Recovering/Resolving]
  - Haemangioma [Recovering/Resolving]
  - Condition aggravated [Recovering/Resolving]

NARRATIVE: CASE EVENT DATE: 20221001
